FAERS Safety Report 7070677-3 (Version None)
Quarter: 2010Q4

REPORT INFORMATION
  Report Type: 
  Country: None (occurrence: None)
  Receive Date: 20101029
  Receipt Date: 20101020
  Transmission Date: 20110411
  Serious: Yes (Other)
  Sender: FDA-Public Use
  Company Number: NL-JNJFOC-20101006013

PATIENT
  Age: 57 Year
  Sex: Female

DRUGS (1)
  1. TRISPORAL [Suspect]
     Indication: TINEA PEDIS
     Route: 065

REACTIONS (5)
  - CARDIAC DISORDER [None]
  - DIZZINESS [None]
  - DYSPNOEA [None]
  - PALPITATIONS [None]
  - VOMITING [None]
